FAERS Safety Report 4441937-7 (Version None)
Quarter: 2004Q3

REPORT INFORMATION
  Report Type: 
  Country: None (occurrence: None)
  Receive Date: 20040903
  Receipt Date: 20040706
  Transmission Date: 20050211
  Serious: Yes (Other)
  Sender: FDA-Public Use
  Company Number: 2004UW11636

PATIENT
  Age: 48 Year
  Sex: Male
  Weight: 136.0791 kg

DRUGS (4)
  1. CRESTOR [Suspect]
     Indication: BLOOD CHOLESTEROL INCREASED
     Dosage: 10 MG PO
     Route: 048
     Dates: start: 20040101
  2. UNSPECIFIED BIPOLAR MEDICATION [Concomitant]
  3. NICOTROL [Concomitant]
  4. ANTIDEPRESSANTS [Concomitant]

REACTIONS (1)
  - LIBIDO DECREASED [None]
